FAERS Safety Report 7774625-X (Version None)
Quarter: 2011Q3

REPORT INFORMATION
  Report Type: 
  Country: None (occurrence: None)
  Receive Date: 20110923
  Receipt Date: 20110920
  Transmission Date: 20111222
  Serious: Yes (Life-Threatening, Hospitalization)
  Sender: FDA-Public Use
  Company Number: FR-ROCHE-802956

PATIENT
  Sex: Male

DRUGS (1)
  1. XELODA [Suspect]
     Route: 065

REACTIONS (4)
  - NEOPLASM [None]
  - VENTRICULAR TACHYCARDIA [None]
  - PLEURAL EFFUSION [None]
  - CARDIOMYOPATHY [None]
